FAERS Safety Report 26035356 (Version 2)
Quarter: 2025Q4

REPORT INFORMATION
  Report Type: Spontaneous
  Country: US (occurrence: US)
  Receive Date: 20251112
  Receipt Date: 20251119
  Transmission Date: 20260117
  Serious: Yes (Hospitalization)
  Sender: TEVA
  Company Number: US-TEVA-VS-3389412

PATIENT
  Age: 18 Year
  Sex: Female

DRUGS (12)
  1. CLONIDINE [Suspect]
     Active Substance: CLONIDINE
     Indication: Psychiatric care
     Route: 065
  2. HALOPERIDOL [Suspect]
     Active Substance: HALOPERIDOL
     Indication: Psychiatric care
     Dosage: TIME INTERVAL: 0.33333333 DAYS
     Route: 065
  3. OXCARBAZEPINE [Suspect]
     Active Substance: OXCARBAZEPINE
     Indication: Psychiatric care
     Route: 065
  4. FLUOXETINE [Suspect]
     Active Substance: FLUOXETINE HYDROCHLORIDE
     Indication: Psychiatric care
     Route: 065
  5. VALPROIC ACID [Suspect]
     Active Substance: VALPROIC ACID
     Indication: Psychiatric care
     Route: 065
  6. CLOZAPINE [Suspect]
     Active Substance: CLOZAPINE
     Indication: Psychiatric care
     Route: 065
  7. CLOZAPINE [Suspect]
     Active Substance: CLOZAPINE
     Indication: Psychiatric care
     Route: 065
  8. CLOZAPINE [Suspect]
     Active Substance: CLOZAPINE
     Indication: Psychiatric care
     Route: 065
  9. DEXMEDETOMIDINE [Concomitant]
     Active Substance: DEXMEDETOMIDINE
     Indication: Agitation
  10. LORAZEPAM [Suspect]
     Active Substance: LORAZEPAM
     Indication: Psychiatric care
     Dosage: 1.5MG EACH MORNING, 1.5MG MIDDAY AND 2MG AT BEDTIME.
     Route: 065
  11. MELATONIN [Suspect]
     Active Substance: MELATONIN
     Indication: Psychiatric care
     Route: 065
  12. ACETYLCYSTEINE [Suspect]
     Active Substance: ACETYLCYSTEINE
     Indication: Psychiatric care
     Route: 065

REACTIONS (7)
  - Drug ineffective [Unknown]
  - Ejection fraction decreased [Recovering/Resolving]
  - Myocarditis [Recovering/Resolving]
  - Sinus tachycardia [Recovering/Resolving]
  - Pericardial effusion [Recovering/Resolving]
  - Orthostatic hypotension [Recovering/Resolving]
  - Drug interaction [Unknown]
